FAERS Safety Report 25056935 (Version 2)
Quarter: 2025Q1

REPORT INFORMATION
  Report Type: Report from Study
  Country: GB (occurrence: GB)
  Receive Date: 20250310
  Receipt Date: 20250319
  Transmission Date: 20250409
  Serious: Yes (Hospitalization)
  Sender: ROCHE
  Company Number: GB-ROCHE-10000220847

PATIENT
  Age: 73 Year
  Sex: Female
  Weight: 79 kg

DRUGS (17)
  1. ATEZOLIZUMAB [Suspect]
     Active Substance: ATEZOLIZUMAB
     Indication: Hepatocellular carcinoma
     Route: 042
     Dates: start: 20221222
  2. BEVACIZUMAB [Suspect]
     Active Substance: BEVACIZUMAB
     Indication: Hepatocellular carcinoma
     Route: 065
     Dates: start: 20221222
  3. MORPHINE SULFATE [Concomitant]
     Active Substance: MORPHINE SULFATE
     Dates: start: 20220822
  4. AMITRIPTYLINE [Concomitant]
     Active Substance: AMITRIPTYLINE
     Dates: start: 20211208
  5. AMITRIPTYLINE [Concomitant]
     Active Substance: AMITRIPTYLINE
     Dates: start: 20220822
  6. AZITHROMYCIN [Concomitant]
     Active Substance: AZITHROMYCIN
     Dates: start: 20220628
  7. LOPERAMIDE [Concomitant]
     Active Substance: LOPERAMIDE
     Dates: start: 20220622
  8. ATORVASTATIN [Concomitant]
     Active Substance: ATORVASTATIN
     Dates: start: 20220222
  9. ALBUTEROL [Concomitant]
     Active Substance: ALBUTEROL
     Dates: start: 20210301
  10. ALBUTEROL [Concomitant]
     Active Substance: ALBUTEROL
     Dosage: TEVA INHALER 1 PUFF(SALBUTOMOL)
     Dates: start: 20161026
  11. LANSOPRAZOLE [Concomitant]
     Active Substance: LANSOPRAZOLE
     Dates: start: 20200224
  12. CARVEDILOL [Concomitant]
     Active Substance: CARVEDILOL
     Dates: start: 20221207
  13. DALTEPARIN [Concomitant]
     Active Substance: DALTEPARIN
     Dosage: 5000 U
     Dates: start: 20250226
  14. DALTEPARIN [Concomitant]
     Active Substance: DALTEPARIN
     Dates: start: 20250311
  15. CARBOHYDRATES\FATTY ACIDS\MINERALS\PROTEIN\VITAMINS [Concomitant]
     Active Substance: CARBOHYDRATES\FATTY ACIDS\MINERALS\PROTEIN\VITAMINS
     Dates: start: 20221115
  16. ZOPICLONE [Concomitant]
     Active Substance: ZOPICLONE
     Dates: start: 20250311
  17. DOUBLEBASE GEL 1 APPLICATION [Concomitant]
     Dates: start: 20250311

REACTIONS (3)
  - Hypomagnesaemia [Not Recovered/Not Resolved]
  - Sepsis [Not Recovered/Not Resolved]
  - Cellulitis [Unknown]

NARRATIVE: CASE EVENT DATE: 20250226
